FAERS Safety Report 11909980 (Version 1)
Quarter: 2016Q1

REPORT INFORMATION
  Report Type: Spontaneous
  Country: US (occurrence: US)
  Receive Date: 20160112
  Receipt Date: 20160112
  Transmission Date: 20160526
  Serious: Yes (Other)
  Sender: FDA-Public Use
  Company Number: US-WEST-WARD PHARMACEUTICALS CORP.-US-H14001-16-00009

PATIENT
  Age: 82 Year
  Sex: Female
  Weight: 72.64 kg

DRUGS (7)
  1. PRILOSEC [Concomitant]
     Active Substance: OMEPRAZOLE MAGNESIUM
     Indication: PRODUCT USED FOR UNKNOWN INDICATION
     Route: 065
  2. PREDNISONE TABLETS USP [Suspect]
     Active Substance: PREDNISONE
     Indication: OROPHARYNGEAL PAIN
     Route: 048
     Dates: start: 20151223, end: 20151223
  3. PREDNISONE TABLETS USP [Suspect]
     Active Substance: PREDNISONE
     Route: 048
     Dates: start: 20151224, end: 20151224
  4. PREDNISONE TABLETS USP [Suspect]
     Active Substance: PREDNISONE
     Route: 048
     Dates: start: 20151225, end: 20151225
  5. PREDNISONE TABLETS USP [Suspect]
     Active Substance: PREDNISONE
     Route: 048
     Dates: start: 20151226, end: 20151226
  6. PREDNISONE TABLETS USP [Suspect]
     Active Substance: PREDNISONE
     Indication: THROAT IRRITATION
     Route: 048
     Dates: start: 20151222, end: 20151222
  7. PREDNISONE TABLETS USP [Suspect]
     Active Substance: PREDNISONE
     Route: 048
     Dates: start: 20151227, end: 20151227

REACTIONS (6)
  - Dysphagia [Recovering/Resolving]
  - Lip blister [Recovering/Resolving]
  - Throat irritation [Recovering/Resolving]
  - Choking sensation [Recovering/Resolving]
  - Throat tightness [Recovering/Resolving]
  - Pharyngeal oedema [Recovering/Resolving]

NARRATIVE: CASE EVENT DATE: 20151222
